FAERS Safety Report 21727598 (Version 1)
Quarter: 2022Q4

REPORT INFORMATION
  Report Type: Spontaneous
  Country: US (occurrence: None)
  Receive Date: 20221213
  Receipt Date: 20221213
  Transmission Date: 20230113
  Serious: Yes (Life-Threatening, Hospitalization, Disabling, Other)
  Sender: FDA-Public Use
  Company Number: None

PATIENT
  Age: 72 Year
  Sex: Female
  Weight: 47.25 kg

DRUGS (2)
  1. ESTRADIOL TRANSDERMAL SYSTEM [Suspect]
     Active Substance: ESTRADIOL
     Indication: Menopausal symptoms
     Dosage: OTHER QUANTITY : 1 PATCH(ES);?OTHER FREQUENCY : TWICE WEEKLY;?
     Route: 062
  2. cancer treatment [Concomitant]

REACTIONS (2)
  - Endometrial cancer [None]
  - Metastases to ovary [None]

NARRATIVE: CASE EVENT DATE: 20220715
